FAERS Safety Report 11343929 (Version 1)
Quarter: 2015Q3

REPORT INFORMATION
  Report Type: Spontaneous
  Country: US (occurrence: None)
  Receive Date: 20150804
  Receipt Date: 20150804
  Transmission Date: 20151125
  Serious: Yes (Hospitalization)
  Sender: FDA-Public Use
  Company Number: None

PATIENT
  Age: 79 Year
  Sex: Female

DRUGS (1)
  1. ETOPOSIDE 50MG MYLAN [Suspect]
     Active Substance: ETOPOSIDE
     Indication: NEOPLASM MALIGNANT
     Dosage: 2 CAPS DAYS 1 AND 2 OF CHEMO, ORAL
     Route: 048
     Dates: start: 20150316, end: 20150731

REACTIONS (2)
  - Neutropenia [None]
  - Infection [None]

NARRATIVE: CASE EVENT DATE: 20150731
